FAERS Safety Report 18486987 (Version 1)
Quarter: 2020Q4

REPORT INFORMATION
  Report Type: Spontaneous
  Country: CN (occurrence: CN)
  Receive Date: 20201110
  Receipt Date: 20201110
  Transmission Date: 20210114
  Serious: Yes (Other)
  Sender: FDA-Public Use
  Company Number: CN-ALLERGAN-2043734US

PATIENT
  Sex: Female

DRUGS (3)
  1. ADEMETIONINE [Suspect]
     Active Substance: ADEMETIONINE
     Indication: CHOLESTASIS OF PREGNANCY
     Dosage: 1000 MG, QD
  2. MAGNESIUM ISOGLYCYRRHIZINATE [Suspect]
     Active Substance: MAGNESIUM ISOGLYCYRRHIZINATE
     Indication: CHOLESTASIS OF PREGNANCY
     Dosage: 100 MG, QD
  3. URSODEOXYCHOLIC ACID UNK [Suspect]
     Active Substance: URSODIOL
     Indication: CHOLESTASIS OF PREGNANCY
     Dosage: 100 MG, TID
     Route: 048

REACTIONS (3)
  - Stillbirth [Unknown]
  - Off label use [Unknown]
  - Pregnancy [Unknown]
